FAERS Safety Report 10610775 (Version 1)
Quarter: 2014Q4

REPORT INFORMATION
  Report Type: Spontaneous
  Country: US (occurrence: None)
  Receive Date: 20141124
  Receipt Date: 20141124
  Transmission Date: 20150529
  Serious: Yes (Hospitalization)
  Sender: FDA-Public Use
  Company Number: US-H14001-14-01626

PATIENT
  Age: 67 Year
  Sex: Male

DRUGS (2)
  1. ATROPINE (ATROPINE) (UNKNOWN) (ATROPINE) [Suspect]
     Active Substance: ATROPINE
     Indication: CARDIAC STRESS TEST
  2. DOBUTAMINE [Suspect]
     Active Substance: DOBUTAMINE\DOBUTAMINE HYDROCHLORIDE
     Indication: CARDIAC STRESS TEST

REACTIONS (3)
  - Dry mouth [None]
  - Encephalopathy [None]
  - Dysphagia [None]
